FAERS Safety Report 18356306 (Version 1)
Quarter: 2020Q4

REPORT INFORMATION
  Report Type: Spontaneous
  Country: FR (occurrence: FR)
  Receive Date: 20201007
  Receipt Date: 20201007
  Transmission Date: 20210114
  Serious: Yes (Hospitalization, Other)
  Sender: FDA-Public Use
  Company Number: FR-JNJFOC-20201002913

PATIENT
  Age: 82 Year
  Sex: Female

DRUGS (6)
  1. ACETYLSALICYLIC ACID [Suspect]
     Active Substance: ASPIRIN
     Dosage: UNK
  2. BISOPROLOL [Concomitant]
     Active Substance: BISOPROLOL
  3. PLAVIX [Suspect]
     Active Substance: CLOPIDOGREL BISULFATE
  4. RIVAROXABAN [Suspect]
     Active Substance: RIVAROXABAN
     Indication: ATRIAL FIBRILLATION
     Route: 048
  5. RIVAROXABAN [Suspect]
     Active Substance: RIVAROXABAN
     Route: 048
  6. ZOCOR [Concomitant]
     Active Substance: SIMVASTATIN
     Dosage: UNK
     Dates: start: 2020

REACTIONS (10)
  - Pericarditis constrictive [Unknown]
  - Orthostatic hypotension [Unknown]
  - Face injury [Unknown]
  - Chest pain [Unknown]
  - Cellulitis [Unknown]
  - Retinal haemorrhage [Unknown]
  - Chorioretinitis [Unknown]
  - Tachyarrhythmia [Unknown]
  - Off label use [Unknown]
  - Malaise [Unknown]

NARRATIVE: CASE EVENT DATE: 202001
